FAERS Safety Report 11323184 (Version 2)
Quarter: 2017Q2

REPORT INFORMATION
  Report Type: Report from Study
  Country: BR (occurrence: BR)
  Receive Date: 20150730
  Receipt Date: 20170503
  Transmission Date: 20170829
  Serious: Yes (Other)
  Sender: FDA-Public Use
  Company Number: BR-AMGEN-BRACT2015076160

PATIENT
  Age: 11 Year
  Sex: Male
  Weight: 25 kg

DRUGS (1)
  1. IVABRADINE [Suspect]
     Active Substance: IVABRADINE
     Indication: CARDIAC FAILURE CHRONIC
     Dosage: 5 MG, BID
     Route: 048

REACTIONS (2)
  - Drug administered to patient of inappropriate age [Not Recovered/Not Resolved]
  - Respiratory tract infection [Recovered/Resolved]

NARRATIVE: CASE EVENT DATE: 2015
